FAERS Safety Report 10055657 (Version 1)
Quarter: 2014Q2

REPORT INFORMATION
  Report Type: Spontaneous
  Country: US (occurrence: None)
  Receive Date: 20140402
  Receipt Date: 20140402
  Transmission Date: 20141212
  Serious: Yes (Other)
  Sender: FDA-Public Use
  Company Number: None

PATIENT
  Sex: Female

DRUGS (7)
  1. AFFINITOR [Suspect]
     Route: 048
     Dates: start: 20140207
  2. AFFINITOR [Suspect]
     Route: 048
     Dates: start: 20140207
  3. ATORVASTATIN [Concomitant]
  4. AMLODIPINE [Concomitant]
  5. LEVOTHYROXINE [Concomitant]
  6. EXTEMESTANE [Concomitant]
  7. TYKELGHERCEPTIVIL-LYSINE [Concomitant]

REACTIONS (5)
  - Stomatitis [None]
  - Decreased appetite [None]
  - Ageusia [None]
  - Nasopharyngitis [None]
  - Cough [None]
